FAERS Safety Report 18926718 (Version 2)
Quarter: 2021Q4

REPORT INFORMATION
  Report Type: Spontaneous
  Country: US (occurrence: US)
  Receive Date: 20210223
  Receipt Date: 20211130
  Transmission Date: 20220303
  Serious: Yes (Other)
  Sender: FDA-Public Use
  Company Number: US-SA-SAC20210219001362

PATIENT
  Sex: Female

DRUGS (1)
  1. AUBAGIO [Suspect]
     Active Substance: TERIFLUNOMIDE
     Indication: Multiple sclerosis
     Dosage: 14 MG, QD
     Route: 048
     Dates: start: 201910

REACTIONS (6)
  - Arnold-Chiari malformation [Recovering/Resolving]
  - Multiple sclerosis relapse [Recovering/Resolving]
  - Back pain [Recovering/Resolving]
  - Chills [Unknown]
  - Pain [Unknown]
  - Headache [Unknown]
